FAERS Safety Report 5303713-2 (Version None)
Quarter: 2007Q2

REPORT INFORMATION
  Report Type: 
  Country: None (occurrence: None)
  Receive Date: 20070420
  Receipt Date: 20070416
  Transmission Date: 20071010
  Serious: Yes (Hospitalization)
  Sender: FDA-Public Use
  Company Number: US-MERCK-0704USA03064

PATIENT
  Age: 64 Year
  Sex: Female

DRUGS (2)
  1. SINGULAIR [Suspect]
     Indication: BRONCHOPNEUMONIA
     Route: 048
     Dates: start: 20070220, end: 20070228
  2. OXYGEN [Concomitant]

REACTIONS (7)
  - CHROMATURIA [None]
  - DIARRHOEA [None]
  - DYSPNOEA [None]
  - HEART RATE IRREGULAR [None]
  - INSOMNIA [None]
  - LIVER DISORDER [None]
  - STOMACH DISCOMFORT [None]
